FAERS Safety Report 23178327 (Version 10)
Quarter: 2025Q2

REPORT INFORMATION
  Report Type: Report from Study
  Country: US (occurrence: US)
  Receive Date: 20231113
  Receipt Date: 20250514
  Transmission Date: 20250716
  Serious: Yes (Hospitalization)
  Sender: TAKEDA
  Company Number: US-TAKEDA-US201905550

PATIENT
  Age: 57 Year
  Sex: Female

DRUGS (6)
  1. LANADELUMAB [Suspect]
     Active Substance: LANADELUMAB
     Indication: Hereditary angioedema
     Dosage: 300 MILLIGRAM, Q2WEEKS
     Dates: start: 20181120
  2. LANADELUMAB [Suspect]
     Active Substance: LANADELUMAB
     Indication: Immune system disorder
     Dosage: 300 MILLIGRAM, Q4WEEKS
     Dates: start: 201811
  3. LANADELUMAB [Suspect]
     Active Substance: LANADELUMAB
     Dosage: 300 MILLIGRAM, Q4WEEKS
     Dates: start: 201909
  4. LANADELUMAB [Suspect]
     Active Substance: LANADELUMAB
     Dosage: 2 MILLILITER, Q4WEEKS
     Dates: start: 20200604
  5. LANADELUMAB [Suspect]
     Active Substance: LANADELUMAB
     Dosage: 300 MILLIGRAM, Q4WEEKS
  6. TYMLOS [Concomitant]
     Active Substance: ABALOPARATIDE
     Indication: Osteoporosis

REACTIONS (15)
  - Back pain [Unknown]
  - Urinary tract infection [Unknown]
  - Weight decreased [Unknown]
  - Palpitations [Recovered/Resolved]
  - Weight increased [Unknown]
  - Vertigo [Unknown]
  - Ligament sprain [Unknown]
  - Product dose omission issue [Unknown]
  - Product use issue [Unknown]
  - Blood pressure increased [Unknown]
  - Rash erythematous [Unknown]
  - Headache [Not Recovered/Not Resolved]
  - Rash [Unknown]
  - Hereditary angioedema [Recovered/Resolved]
  - Dizziness [Unknown]

NARRATIVE: CASE EVENT DATE: 20210728
